FAERS Safety Report 5135669-X (Version None)
Quarter: 2006Q4

REPORT INFORMATION
  Report Type: 
  Country: None (occurrence: None)
  Receive Date: 20061026
  Receipt Date: 20061017
  Transmission Date: 20070319
  Serious: Yes (Hospitalization)
  Sender: FDA-Public Use
  Company Number: FR-SANOFI-SYNTHELABO-A02200602650

PATIENT
  Age: 80 Year
  Sex: Female

DRUGS (3)
  1. ACETAMINOPHEN [Suspect]
     Indication: SPINAL CORD ISCHAEMIA
     Dosage: UNK
     Route: 042
     Dates: start: 20060901, end: 20060901
  2. LOVENOX [Suspect]
     Indication: SPINAL CORD ISCHAEMIA
     Dosage: UNK
     Route: 058
     Dates: start: 20060901, end: 20060901
  3. PLAVIX [Suspect]
     Indication: SPINAL CORD ISCHAEMIA
     Dosage: UNK
     Route: 048
     Dates: start: 20060901, end: 20060901

REACTIONS (3)
  - BLISTER [None]
  - FIXED ERUPTION [None]
  - URTICARIA [None]
